FAERS Safety Report 6856635-X (Version None)
Quarter: 2010Q3

REPORT INFORMATION
  Report Type: 
  Country: None (occurrence: None)
  Receive Date: 20100716
  Receipt Date: 20100716
  Transmission Date: 20110219
  Serious: Yes (Life-Threatening, Hospitalization)
  Sender: FDA-Public Use
  Company Number: None

PATIENT
  Age: 85 Year
  Sex: Female
  Weight: 44.4 kg

DRUGS (1)
  1. WARFARIN SODIUM [Suspect]
     Indication: DEEP VEIN THROMBOSIS
     Dosage: 2 MG DAILY PO
     Route: 048

REACTIONS (5)
  - CEREBRAL HAEMORRHAGE [None]
  - DYSARTHRIA [None]
  - INTERNATIONAL NORMALISED RATIO INCREASED [None]
  - INTERVERTEBRAL DISC COMPRESSION [None]
  - MUSCULAR WEAKNESS [None]
